FAERS Safety Report 12929298 (Version 1)
Quarter: 2016Q4

REPORT INFORMATION
  Report Type: Report from Study
  Country: BE (occurrence: BE)
  Receive Date: 20161110
  Receipt Date: 20161110
  Transmission Date: 20170207
  Serious: Yes (Death, Hospitalization)
  Sender: FDA-Public Use
  Company Number: BE-BAYER-2016-200794

PATIENT
  Sex: Male

DRUGS (3)
  1. BURINEX [Concomitant]
     Active Substance: BUMETANIDE
     Dosage: 2 MG, UNK
     Dates: start: 20160927
  2. NORFLOXACINE [Concomitant]
     Active Substance: NORFLOXACIN
     Dosage: 400 MG, BID
  3. NEXAVAR [Suspect]
     Active Substance: SORAFENIB
     Indication: HEPATOCELLULAR CARCINOMA
     Dosage: DAILY DOSE 400 MG
     Dates: start: 20160919, end: 20161017

REACTIONS (3)
  - Diarrhoea [None]
  - Dyspnoea [None]
  - Death [Fatal]

NARRATIVE: CASE EVENT DATE: 201610
